FAERS Safety Report 7707191-5 (Version None)
Quarter: 2011Q3

REPORT INFORMATION
  Report Type: 
  Country: None (occurrence: None)
  Receive Date: 20110824
  Receipt Date: 20110809
  Transmission Date: 20111222
  Serious: Yes (Hospitalization)
  Sender: FDA-Public Use
  Company Number: PHHY2011MX73147

PATIENT
  Sex: Male

DRUGS (3)
  1. CITICOLINE [Concomitant]
     Indication: APHASIA
     Dosage: 2 DF, PER DAY
     Dates: start: 20110730
  2. DIOVAN HCT [Suspect]
     Indication: HYPERTENSION
     Dosage: 2 DF (320 MG VALS AND 25 MG HYDR) PER DAY
     Dates: start: 20110626
  3. PRODAXAR [Concomitant]
     Indication: HYPERTENSION
     Dosage: 1 DF, QD
     Dates: start: 20110730

REACTIONS (2)
  - APHASIA [None]
  - MYOCARDIAL INFARCTION [None]
